FAERS Safety Report 7475115-4 (Version None)
Quarter: 2011Q2

REPORT INFORMATION
  Report Type: 
  Country: None (occurrence: None)
  Receive Date: 20110505
  Receipt Date: 20110216
  Transmission Date: 20111010
  Serious: Yes (Other)
  Sender: FDA-Public Use
  Company Number: GB-ACCORD-008152

PATIENT
  Age: 55 Year
  Sex: Female

DRUGS (5)
  1. DEXAMETHASONE [Concomitant]
  2. ACETAMINOPHEN AND CODEINE PHOSPHATE [Concomitant]
  3. ONDANSETRON [Concomitant]
  4. CARBOPLATIN [Suspect]
     Indication: OVARIAN CANCER
     Dates: start: 20101104
  5. PACLITAXEL [Suspect]
     Indication: OVARIAN CANCER
     Dates: start: 20101104

REACTIONS (7)
  - INFARCTION [None]
  - MUSCULOSKELETAL DISCOMFORT [None]
  - EMBOLISM ARTERIAL [None]
  - CONTUSION [None]
  - PAIN IN EXTREMITY [None]
  - CARDIAC VALVE DISEASE [None]
  - SPLINTER HAEMORRHAGES [None]
